FAERS Safety Report 4410678-4 (Version None)
Quarter: 2004Q3

REPORT INFORMATION
  Report Type: 
  Country: None (occurrence: None)
  Receive Date: 20040726
  Receipt Date: 20040709
  Transmission Date: 20050211
  Serious: No
  Sender: FDA-Public Use
  Company Number: B0338504A

PATIENT

DRUGS (5)
  1. VINORELBINE TARTRATE (FORMULATION UNKNOWN) (GENERIC) (VINORELBINE TART [Suspect]
     Dosage: 30 MG/M2 / CYCLIC
  2. CISPLATIN [Suspect]
     Dosage: 100 MG/M2 / CYCLIC
  3. CARBOPLATIN [Suspect]
     Dosage: 400 MG/M2 /CYCLIC
  4. GEMCITABINE (GEMCITABINE) [Suspect]
     Dosage: 1000 MG/M2
  5. RADIOTHERAPY (RADIOTHERAPY) [Suspect]
     Dosage: CYCLIC

REACTIONS (1)
  - OESOPHAGEAL STENOSIS [None]
